FAERS Safety Report 10143495 (Version 1)
Quarter: 2014Q2

REPORT INFORMATION
  Report Type: Spontaneous
  Country: US (occurrence: US)
  Receive Date: 20140430
  Receipt Date: 20140430
  Transmission Date: 20141212
  Serious: No
  Sender: FDA-Public Use
  Company Number: US-PFIZER INC-2014114950

PATIENT
  Age: 51 Year
  Sex: Female

DRUGS (6)
  1. VISTARIL [Suspect]
     Dosage: UNK
  2. LODINE [Suspect]
     Dosage: UNK
  3. LIDOCAINE HCL [Suspect]
     Dosage: UNK
  4. CYMBALTA [Suspect]
     Dosage: UNK
  5. ULTRAM [Suspect]
     Dosage: UNK
  6. FLEXERIL [Suspect]
     Dosage: UNK

REACTIONS (1)
  - Drug hypersensitivity [Unknown]
